FAERS Safety Report 7034770-3 (Version None)
Quarter: 2010Q4

REPORT INFORMATION
  Report Type: 
  Country: None (occurrence: None)
  Receive Date: 20101008
  Receipt Date: 20101004
  Transmission Date: 20110411
  Serious: Yes (Death, Other)
  Sender: FDA-Public Use
  Company Number: PHHY2010NZ66472

PATIENT
  Sex: Female

DRUGS (1)
  1. GLEEVEC [Suspect]

REACTIONS (3)
  - DEATH [None]
  - INTERSTITIAL LUNG DISEASE [None]
  - RESPIRATORY TRACT INFECTION [None]
